FAERS Safety Report 18322411 (Version 1)
Quarter: 2020Q3

REPORT INFORMATION
  Report Type: Spontaneous
  Country: AT (occurrence: AT)
  Receive Date: 20200928
  Receipt Date: 20200928
  Transmission Date: 20201103
  Serious: Yes (Hospitalization)
  Sender: FDA-Public Use
  Company Number: NVSC2020AT257444

PATIENT
  Age: 55 Year
  Sex: Male

DRUGS (1)
  1. CLAVAMOX 875 MG/125 MG ? FILMTABLETTEN [Suspect]
     Active Substance: AMOXICILLIN\CLAVULANATE POTASSIUM
     Indication: PRODUCT USED FOR UNKNOWN INDICATION
     Dosage: UNK (INDIKATION: GEM?? FACHINFORMATION)
     Route: 048
     Dates: start: 20160101, end: 20160101

REACTIONS (5)
  - Erythema [Recovered/Resolved]
  - Circulatory collapse [Recovered/Resolved]
  - General physical health deterioration [Recovered/Resolved]
  - Pruritus [Recovered/Resolved]
  - Type I hypersensitivity [Recovered/Resolved]

NARRATIVE: CASE EVENT DATE: 20160101
